FAERS Safety Report 9665799 (Version 1)
Quarter: 2013Q4

REPORT INFORMATION
  Report Type: Spontaneous
  Country: US (occurrence: None)
  Receive Date: 20131031
  Receipt Date: 20131031
  Transmission Date: 20140711
  Serious: No
  Sender: FDA-Public Use
  Company Number: None

PATIENT
  Age: 19 Year
  Sex: Female
  Weight: 86.18 kg

DRUGS (1)
  1. MIRENA [Suspect]

REACTIONS (6)
  - Cholelithiasis [None]
  - Pancreatitis [None]
  - Ovarian cyst [None]
  - Pregnancy [None]
  - Abortion [None]
  - Maternal exposure before pregnancy [None]
